FAERS Safety Report 4921304-X (Version None)
Quarter: 2006Q1

REPORT INFORMATION
  Report Type: 
  Country: None (occurrence: None)
  Receive Date: 20060224
  Receipt Date: 20051101
  Transmission Date: 20060701
  Serious: Yes (Hospitalization, Other)
  Sender: FDA-Public Use
  Company Number: JP-BRISTOL-MYERS SQUIBB COMPANY-13167770

PATIENT
  Age: 49 Year
  Sex: Female

DRUGS (1)
  1. KENACORT-A OPHTHALMIC OINTMENT [Suspect]
     Indication: TENOSYNOVITIS
     Route: 052
     Dates: start: 20050929, end: 20050929

REACTIONS (9)
  - ARTHRALGIA [None]
  - ASTHENIA [None]
  - CONJUNCTIVAL HYPERAEMIA [None]
  - ERYTHEMA OF EYELID [None]
  - HYPOAESTHESIA [None]
  - METRORRHAGIA [None]
  - PERSONALITY DISORDER [None]
  - SCHIZOPHRENIA [None]
  - TONGUE COATED [None]
